FAERS Safety Report 10900648 (Version 2)
Quarter: 2015Q1

REPORT INFORMATION
  Report Type: Spontaneous
  Country: US (occurrence: US)
  Receive Date: 20150310
  Receipt Date: 20150320
  Transmission Date: 20150721
  Serious: Yes (Death, Hospitalization, Other)
  Sender: FDA-Public Use
  Company Number: US-AMGEN-USASP2015020037

PATIENT
  Age: 83 Year
  Sex: Female
  Weight: 84.6 kg

DRUGS (3)
  1. CARBOPLATIN. [Concomitant]
     Active Substance: CARBOPLATIN
     Indication: NON-SMALL CELL LUNG CANCER
     Dosage: UNK, Q21DAYS
     Route: 042
     Dates: start: 20150119, end: 20150209
  2. ALENDRONATE [Concomitant]
     Active Substance: ALENDRONATE SODIUM
     Indication: OSTEOPOROSIS
     Dosage: 70 MG, Q7D
     Route: 048
  3. XGEVA [Suspect]
     Active Substance: DENOSUMAB
     Indication: METASTASES TO BONE
     Dosage: 120 MG, Q28DAYS
     Route: 058
     Dates: start: 20150126

REACTIONS (6)
  - Atrial fibrillation [Unknown]
  - Fall [Unknown]
  - Loss of consciousness [Unknown]
  - Hip fracture [Fatal]
  - Hypocalcaemia [Unknown]
  - Sepsis [Unknown]

NARRATIVE: CASE EVENT DATE: 20150212
